FAERS Safety Report 23979450 (Version 1)
Quarter: 2024Q2

REPORT INFORMATION
  Report Type: Spontaneous
  Country: US (occurrence: US)
  Receive Date: 20240615
  Receipt Date: 20240615
  Transmission Date: 20240716
  Serious: Yes (Other)
  Sender: FDA-Public Use
  Company Number: US-AMGEN-USASP2024115403

PATIENT
  Age: 56 Year
  Sex: Female

DRUGS (3)
  1. OTEZLA [Suspect]
     Active Substance: APREMILAST
     Indication: Behcet^s syndrome
     Dosage: 30 MILLIGRAM, BID
     Route: 048
     Dates: start: 20240109
  2. MAGNESIUM [Concomitant]
     Active Substance: MAGNESIUM
     Dosage: 125 MILLIGRAM
  3. VITAMIN C [Concomitant]
     Active Substance: ASCORBIC ACID
     Dosage: 1000 MILLIGRAM, LIQUID

REACTIONS (2)
  - Behcet^s syndrome [Not Recovered/Not Resolved]
  - Stress [Not Recovered/Not Resolved]

NARRATIVE: CASE EVENT DATE: 20240603
